FAERS Safety Report 5166313-3 (Version None)
Quarter: 2006Q4

REPORT INFORMATION
  Report Type: 
  Country: None (occurrence: None)
  Receive Date: 20061129
  Receipt Date: 20061115
  Transmission Date: 20070319
  Serious: Yes (Other)
  Sender: FDA-Public Use
  Company Number: 230321M06USA

PATIENT
  Age: 61 Year
  Sex: Male

DRUGS (3)
  1. REBIF [Suspect]
     Indication: MULTIPLE SCLEROSIS
     Dosage: 8.8 MCG, 3 IN 1 WEEKS, SUBCUTANEOUS
     Route: 058
     Dates: start: 20061113, end: 20061115
  2. IMURAN [Concomitant]
  3. TYLENOL (COTYLENOL) [Concomitant]

REACTIONS (5)
  - CONVULSION [None]
  - DYSARTHRIA [None]
  - ELECTROENCEPHALOGRAM ABNORMAL [None]
  - INCONTINENCE [None]
  - LOSS OF CONSCIOUSNESS [None]
